FAERS Safety Report 4764518-4 (Version None)
Quarter: 2005Q3

REPORT INFORMATION
  Report Type: 
  Country: None (occurrence: None)
  Receive Date: 20050907
  Receipt Date: 20050826
  Transmission Date: 20060218
  Serious: Yes (Other)
  Sender: FDA-Public Use
  Company Number: 2001055843CA

PATIENT
  Age: 40 Year
  Sex: Female
  Weight: 58.96 kg

DRUGS (4)
  1. DEPO-PROVERA [Suspect]
     Indication: ILL-DEFINED DISORDER
     Dosage: (SINGLE INJECTION) INTRAMUSCULAR
     Route: 030
     Dates: start: 20000101, end: 20000101
  2. MARVELON (DESOGESTREL, ETHINYLESTRADIOL) [Concomitant]
  3. OVRAL (ETHINYLESTRADIOL, LEVONORGESTREL) [Concomitant]
  4. ESTROGENS (ESTROGENS) [Concomitant]

REACTIONS (16)
  - ALOPECIA [None]
  - BACK PAIN [None]
  - DEPRESSION [None]
  - DRUG INEFFECTIVE [None]
  - DYSMENORRHOEA [None]
  - FATIGUE [None]
  - HAEMORRHAGE [None]
  - HEADACHE [None]
  - MENORRHAGIA [None]
  - METRORRHAGIA [None]
  - MUCOSAL HAEMORRHAGE [None]
  - NERVOUSNESS [None]
  - RENAL MASS [None]
  - SOMNOLENCE [None]
  - THROMBOSIS [None]
  - WEIGHT INCREASED [None]
